FAERS Safety Report 9336383 (Version 1)
Quarter: 2013Q2

REPORT INFORMATION
  Report Type: Spontaneous
  Country: US (occurrence: US)
  Receive Date: 20130607
  Receipt Date: 20130607
  Transmission Date: 20140414
  Serious: Yes (Hospitalization, Other)
  Sender: FDA-Public Use
  Company Number: US-AMGEN-USASP2013040026

PATIENT
  Age: 79 Year
  Sex: Female

DRUGS (7)
  1. PROLIA [Suspect]
     Indication: OSTEOPOROSIS POSTMENOPAUSAL
     Dosage: UNK
     Dates: start: 201301
  2. TAMOXIFEN [Concomitant]
  3. DILTIAZEM [Concomitant]
     Dosage: 180 MG, BID
  4. PRILOSEC                           /00661201/ [Concomitant]
  5. CALCIUM WITH VITAMIN D             /00944201/ [Concomitant]
     Dosage: 600 MG, UNK
  6. COUMADIN                           /00014802/ [Concomitant]
     Dosage: UNK
     Dates: start: 2013
  7. EXFORGE [Concomitant]

REACTIONS (8)
  - Cardiac pacemaker insertion [Unknown]
  - Dyspnoea [Recovering/Resolving]
  - Dizziness [Recovering/Resolving]
  - Pulse abnormal [Not Recovered/Not Resolved]
  - Thrombosis [Unknown]
  - Device malfunction [Unknown]
  - Joint swelling [Recovering/Resolving]
  - Local swelling [Recovering/Resolving]
